FAERS Safety Report 10336082 (Version 1)
Quarter: 2014Q3

REPORT INFORMATION
  Report Type: Spontaneous
  Country: US (occurrence: US)
  Receive Date: 20140723
  Receipt Date: 20140723
  Transmission Date: 20150326
  Serious: No
  Sender: FDA-Public Use
  Company Number: US-BRISTOL-MYERS SQUIBB COMPANY-19691575

PATIENT
  Age: 83 Year
  Sex: Male
  Weight: 83.44 kg

DRUGS (3)
  1. TERAZOSIN [Concomitant]
     Active Substance: TERAZOSIN\TERAZOSIN HYDROCHLORIDE
  2. COUMADIN [Suspect]
     Active Substance: WARFARIN SODIUM
     Indication: ATRIAL FIBRILLATION
  3. SOTALOL. [Concomitant]
     Active Substance: SOTALOL

REACTIONS (1)
  - Muscle spasms [Unknown]
